FAERS Safety Report 13907356 (Version 1)
Quarter: 2017Q3

REPORT INFORMATION
  Report Type: Spontaneous
  Country: US (occurrence: US)
  Receive Date: 20170825
  Receipt Date: 20170825
  Transmission Date: 20171127
  Serious: No
  Sender: FDA-Public Use
  Company Number: US-ROCHE-1197603

PATIENT
  Sex: Male

DRUGS (3)
  1. NUTROPIN AQ [Suspect]
     Active Substance: SOMATROPIN
     Indication: GROWTH HORMONE DEFICIENCY
     Route: 058
     Dates: start: 201211
  2. NUTROPIN AQ [Suspect]
     Active Substance: SOMATROPIN
     Dosage: RESTARTED
     Route: 058
  3. NUTROPIN AQ [Suspect]
     Active Substance: SOMATROPIN
     Dosage: RESTARTED
     Route: 058

REACTIONS (8)
  - Nausea [Recovering/Resolving]
  - Dizziness [Recovering/Resolving]
  - Temperature intolerance [Not Recovered/Not Resolved]
  - Disturbance in social behaviour [Recovering/Resolving]
  - Abdominal pain [Recovering/Resolving]
  - Headache [Recovering/Resolving]
  - Vomiting [Recovering/Resolving]
  - Pyrexia [Recovering/Resolving]
